FAERS Safety Report 26218478 (Version 1)
Quarter: 2025Q4

REPORT INFORMATION
  Report Type: Spontaneous
  Country: US (occurrence: US)
  Receive Date: 20251231
  Receipt Date: 20251231
  Transmission Date: 20260117
  Serious: Yes (Life-Threatening, Other)
  Sender: PFIZER
  Company Number: US-PFIZER INC-202500248521

PATIENT
  Age: 30 Year
  Sex: Male

DRUGS (2)
  1. NALOXONE HCL [Suspect]
     Active Substance: NALOXONE HYDROCHLORIDE
     Indication: Toxicity to various agents
     Dosage: UNK, (FOUR DOSES)
  2. FENTANYL [Concomitant]
     Active Substance: FENTANYL
     Indication: Drug use disorder
     Dosage: UNK

REACTIONS (1)
  - Pulmonary oedema [Recovered/Resolved]
